FAERS Safety Report 17636675 (Version 4)
Quarter: 2020Q2

REPORT INFORMATION
  Report Type: Spontaneous
  Country: US (occurrence: US)
  Receive Date: 20200407
  Receipt Date: 20200616
  Transmission Date: 20200713
  Serious: Yes (Other)
  Sender: FDA-Public Use
  Company Number: US-PFIZER INC-2020141322

PATIENT
  Age: 62 Year
  Sex: Female

DRUGS (1)
  1. XELJANZ XR [Suspect]
     Active Substance: TOFACITINIB CITRATE
     Indication: RHEUMATOID ARTHRITIS
     Dosage: 11 MG ONCE DAILY
     Route: 048
     Dates: start: 202004, end: 20200606

REACTIONS (5)
  - Product dose omission [Unknown]
  - Memory impairment [Unknown]
  - Therapeutic product effect incomplete [Unknown]
  - Depressed mood [Unknown]
  - Liver function test increased [Unknown]

NARRATIVE: CASE EVENT DATE: 20200606
